FAERS Safety Report 17995185 (Version 1)
Quarter: 2020Q3

REPORT INFORMATION
  Report Type: Spontaneous
  Country: FR (occurrence: FR)
  Receive Date: 20200708
  Receipt Date: 20200708
  Transmission Date: 20201103
  Serious: Yes (Other)
  Sender: FDA-Public Use
  Company Number: FR-TEVA-2020-FR-1797442

PATIENT
  Age: 17 Year
  Sex: Female

DRUGS (2)
  1. KETOPROFENE [Suspect]
     Active Substance: KETOPROFEN
     Indication: TENDONITIS
     Dosage: 2 TAKEN
     Route: 048
     Dates: start: 201904, end: 201904
  2. MIOREL (THIOCOLCHICOSIDE) [Suspect]
     Active Substance: THIOCOLCHICOSIDE
     Indication: TENDONITIS
     Dosage: 2 TAKEN
     Route: 048
     Dates: start: 201904, end: 201904

REACTIONS (3)
  - Oropharyngeal swelling [Recovered/Resolved]
  - Dyspnoea [Recovered/Resolved]
  - Malaise [Recovered/Resolved]

NARRATIVE: CASE EVENT DATE: 201904
